FAERS Safety Report 20624916 (Version 1)
Quarter: 2022Q1

REPORT INFORMATION
  Report Type: Spontaneous
  Country: JP (occurrence: JP)
  Receive Date: 20220323
  Receipt Date: 20220323
  Transmission Date: 20220423
  Serious: Yes (Hospitalization)
  Sender: FDA-Public Use
  Company Number: JP-SUN PHARMACEUTICAL INDUSTRIES LTD-2022RR-330280

PATIENT
  Age: 44 Year
  Sex: Male

DRUGS (8)
  1. ACETAMINOPHEN [Suspect]
     Active Substance: ACETAMINOPHEN
     Indication: Pain
     Dosage: 3000 MILLIGRAM, DAILY
     Route: 065
  2. FENTANYL [Suspect]
     Active Substance: FENTANYL
     Indication: Pain
     Dosage: 500 MICROGRAM, DAILY
     Route: 042
  3. FENTANYL [Suspect]
     Active Substance: FENTANYL
     Dosage: 700 MICROGRAM, DAILY
     Route: 040
  4. CLONAZEPAM [Suspect]
     Active Substance: CLONAZEPAM
     Indication: Analgesic therapy
     Dosage: 0.5 MILLIGRAM, DAILY
     Route: 065
  5. CLONAZEPAM [Suspect]
     Active Substance: CLONAZEPAM
     Indication: Anxiolytic therapy
  6. FENTANYL [Concomitant]
     Active Substance: FENTANYL
     Indication: Pain
     Dosage: 1 MILLIGRAM, UNK, PATCH
     Route: 065
  7. KETAMINE [Suspect]
     Active Substance: KETAMINE
     Indication: Pain
     Dosage: 40 MILLIGRAM, DAILY
     Route: 065
  8. LIDOCAINE [Suspect]
     Active Substance: LIDOCAINE
     Indication: Pain
     Dosage: 400 MILLIGRAM, DAILY
     Route: 065

REACTIONS (3)
  - Drug ineffective [Unknown]
  - Somnolence [Unknown]
  - Dizziness [Unknown]
